FAERS Safety Report 20350729 (Version 2)
Quarter: 2022Q3

REPORT INFORMATION
  Report Type: Report from Study
  Country: CA (occurrence: CA)
  Receive Date: 20220119
  Receipt Date: 20220721
  Transmission Date: 20221027
  Serious: Yes (Hospitalization)
  Sender: FDA-Public Use
  Company Number: CA-BAYER-2022A005084

PATIENT
  Age: 50 Year
  Sex: Female

DRUGS (5)
  1. ADEMPAS [Suspect]
     Active Substance: RIOCIGUAT
     Indication: Pulmonary arterial hypertension
     Dosage: 1.5 MG, TID
     Dates: start: 20200203, end: 20220111
  2. AMBRISENTAN [Concomitant]
     Active Substance: AMBRISENTAN
  3. FUROSEMIDE [Concomitant]
     Active Substance: FUROSEMIDE
  4. PANTOPRAZOLE [Concomitant]
     Active Substance: PANTOPRAZOLE
  5. EPOPROSTENOL [Concomitant]
     Active Substance: EPOPROSTENOL

REACTIONS (2)
  - Hospitalisation [None]
  - Therapy cessation [None]
